FAERS Safety Report 11544663 (Version 1)
Quarter: 2015Q3

REPORT INFORMATION
  Report Type: Spontaneous
  Country: US (occurrence: None)
  Receive Date: 20150923
  Receipt Date: 20150923
  Transmission Date: 20151125
  Serious: No
  Sender: FDA-Public Use
  Company Number: None

PATIENT
  Age: 77 Year
  Sex: Male

DRUGS (15)
  1. ASPIRIN. [Concomitant]
     Active Substance: ASPIRIN
  2. CLARITHROMYC [Concomitant]
  3. LEVOTHYROXIN [Concomitant]
     Active Substance: LEVOTHYROXINE
  4. SPIRONO/HCTZ [Concomitant]
  5. CALCIUM+D [Concomitant]
  6. VITAMIN B12 [Concomitant]
     Active Substance: CYANOCOBALAMIN
  7. BENICAR [Concomitant]
     Active Substance: OLMESARTAN MEDOXOMIL
  8. TAMSULOSIN [Concomitant]
     Active Substance: TAMSULOSIN
  9. XALKORI [Suspect]
     Active Substance: CRIZOTINIB
     Indication: LUNG NEOPLASM MALIGNANT
     Route: 048
     Dates: start: 20150805
  10. ATORVASTATIN [Concomitant]
     Active Substance: ATORVASTATIN
  11. BRIMONIDINE [Concomitant]
     Active Substance: BRIMONIDINE TARTRATE
  12. LATANOPROST. [Concomitant]
     Active Substance: LATANOPROST
  13. CARVEDILOL. [Concomitant]
     Active Substance: CARVEDILOL
  14. POTASSIUM [Concomitant]
     Active Substance: POTASSIUM
  15. PREVACID [Concomitant]
     Active Substance: LANSOPRAZOLE

REACTIONS (2)
  - Metastases to neck [None]
  - Constipation [None]

NARRATIVE: CASE EVENT DATE: 20150901
